FAERS Safety Report 23901025 (Version 1)
Quarter: 2024Q2

REPORT INFORMATION
  Report Type: Spontaneous
  Country: US (occurrence: None)
  Receive Date: 20240526
  Receipt Date: 20240526
  Transmission Date: 20240716
  Serious: No
  Sender: FDA-Public Use
  Company Number: US-ROCHE-3491802

PATIENT
  Age: 60 Year
  Sex: Female

DRUGS (1)
  1. OCREVUS [Suspect]
     Active Substance: OCRELIZUMAB
     Indication: Relapsing-remitting multiple sclerosis
     Dosage: 300 MG/10 ML
     Route: 042
     Dates: start: 20231031

REACTIONS (2)
  - Alopecia [Recovered/Resolved]
  - Back disorder [Unknown]

NARRATIVE: CASE EVENT DATE: 20240112
